FAERS Safety Report 4450751-8 (Version None)
Quarter: 2004Q3

REPORT INFORMATION
  Report Type: 
  Country: None (occurrence: None)
  Receive Date: 20040909
  Receipt Date: 20040909
  Transmission Date: 20050211
  Serious: Yes (Hospitalization)
  Sender: FDA-Public Use
  Company Number: None

PATIENT
  Age: 93 Year
  Sex: Female
  Weight: 64 kg

DRUGS (2)
  1. BACTRIM [Suspect]
     Indication: PERTUSSIS
     Dosage: 800MG/160MG  TWICE DAIL  ORAL
     Route: 048
     Dates: start: 20040714, end: 20040723
  2. BACTRIM [Suspect]
     Indication: PROPHYLAXIS
     Dosage: 800MG/160MG  TWICE DAIL  ORAL
     Route: 048
     Dates: start: 20040714, end: 20040723

REACTIONS (8)
  - FEELING ABNORMAL [None]
  - HEART RATE DECREASED [None]
  - HYPERKALAEMIA [None]
  - HYPOTENSION [None]
  - NAUSEA [None]
  - RENAL FAILURE ACUTE [None]
  - RESPIRATORY RATE INCREASED [None]
  - VOMITING [None]
